FAERS Safety Report 10219622 (Version 1)
Quarter: 2014Q2

REPORT INFORMATION
  Report Type: Spontaneous
  Country: US (occurrence: None)
  Receive Date: 20140603
  Receipt Date: 20140603
  Transmission Date: 20141212
  Serious: Yes (Hospitalization)
  Sender: FDA-Public Use
  Company Number: 2013RT000082

PATIENT
  Age: 2 Year
  Sex: Female
  Weight: 8.6 kg

DRUGS (12)
  1. PROCYSBI [Suspect]
     Indication: CYSTINOSIS
     Route: 048
     Dates: start: 2013, end: 2014
  2. SODIUM PHOSPHATE (SODIUM PHOSPHATE) [Concomitant]
  3. SODIUM CHLORIDE (SODIUM CHLORIDE) [Concomitant]
  4. LEVOCARNITINE (LEVOCARNITINE) [Concomitant]
  5. ERGOCALCIFEROL (ERGOCALCIFEROL) [Concomitant]
  6. POLYCITRA-K (CITRIC ACID, POSTASSIUM CITRATE) [Concomitant]
  7. FERROUS SULFATE (FERROUS SULFATE) [Concomitant]
  8. EPOGEN (EPOETIN ALFA) [Concomitant]
  9. LANSOPRAZOLE (LANSOPRAZOLE) [Concomitant]
  10. CARAFATE (SUCRALFATE) [Concomitant]
  11. ZOFRAN (ONDANSETRON) [Concomitant]
  12. CYSTARAN (MERCAPTAMINE HYDROCHLORIDE) [Concomitant]

REACTIONS (4)
  - Feeding tube complication [None]
  - Vomiting [None]
  - Dehydration [None]
  - Blood potassium decreased [None]
